FAERS Safety Report 7445319-5 (Version None)
Quarter: 2011Q2

REPORT INFORMATION
  Report Type: 
  Country: None (occurrence: None)
  Receive Date: 20110429
  Receipt Date: 20100322
  Transmission Date: 20111010
  Serious: No
  Sender: FDA-Public Use
  Company Number: A0852036A

PATIENT

DRUGS (1)
  1. ZOFRAN [Suspect]
     Route: 065

REACTIONS (2)
  - SWELLING [None]
  - ILL-DEFINED DISORDER [None]
